FAERS Safety Report 20264044 (Version 1)
Quarter: 2021Q4

REPORT INFORMATION
  Report Type: Spontaneous
  Country: US (occurrence: US)
  Receive Date: 20211231
  Receipt Date: 20211231
  Transmission Date: 20220303
  Serious: No
  Sender: FDA-Public Use
  Company Number: US-ORGANON-O2108USA001625

PATIENT
  Age: 32 Year
  Sex: Female

DRUGS (1)
  1. NEXPLANON [Suspect]
     Active Substance: ETONOGESTREL
     Dosage: 1 IMPLANT IN BICEPS
     Route: 059
     Dates: end: 20201214

REACTIONS (3)
  - Complication associated with device [Recovered/Resolved]
  - Device issue [Recovered/Resolved]
  - No adverse event [Unknown]
